FAERS Safety Report 10507800 (Version 1)
Quarter: 2014Q4

REPORT INFORMATION
  Report Type: Spontaneous
  Country: CA (occurrence: None)
  Receive Date: 20141008
  Receipt Date: 20141008
  Transmission Date: 20150528
  Serious: Yes (Disabling)
  Sender: FDA-Public Use
  Company Number: None

PATIENT
  Age: 52 Year
  Sex: Female
  Weight: 68.04 kg

DRUGS (4)
  1. CLONAZEPAM. [Suspect]
     Active Substance: CLONAZEPAM
     Indication: ANXIETY
     Dates: start: 20060109, end: 20110324
  2. ZOPICLONE [Suspect]
     Active Substance: ZOPICLONE
  3. CLONAZEPAM. [Suspect]
     Active Substance: CLONAZEPAM
     Indication: INSOMNIA
     Dates: start: 20060109, end: 20110324
  4. CLONAZEPAM. [Suspect]
     Active Substance: CLONAZEPAM
     Indication: ANTIDEPRESSANT THERAPY
     Dates: start: 20060109, end: 20110324

REACTIONS (33)
  - Anxiety [None]
  - Unevaluable event [None]
  - Headache [None]
  - Diplopia [None]
  - Photophobia [None]
  - Feeding disorder [None]
  - Facial pain [None]
  - Paraesthesia oral [None]
  - Poor quality sleep [None]
  - Head discomfort [None]
  - Insomnia [None]
  - Quality of life decreased [None]
  - Burning sensation [None]
  - Feeling abnormal [None]
  - Derealisation [None]
  - Anhedonia [None]
  - Withdrawal syndrome [None]
  - Discomfort [None]
  - Hyperphagia [None]
  - Glossodynia [None]
  - Depersonalisation [None]
  - Malaise [None]
  - Abdominal discomfort [None]
  - Abdominal pain [None]
  - Vision blurred [None]
  - Weight decreased [None]
  - Oral discomfort [None]
  - Mental disorder [None]
  - Depression [None]
  - Family stress [None]
  - Arthralgia [None]
  - Weight increased [None]
  - Paraesthesia [None]

NARRATIVE: CASE EVENT DATE: 20060608
